FAERS Safety Report 6651832-0 (Version None)
Quarter: 2010Q1

REPORT INFORMATION
  Report Type: 
  Country: None (occurrence: None)
  Receive Date: 20100325
  Receipt Date: 20100312
  Transmission Date: 20100710
  Serious: Yes (Hospitalization)
  Sender: FDA-Public Use
  Company Number: FR-WYE-G05740810

PATIENT
  Sex: Male

DRUGS (3)
  1. ADVIL LIQUI-GELS [Suspect]
     Indication: PAIN
     Dosage: UNKNOWN
     Route: 048
     Dates: start: 20100301, end: 20100311
  2. PREDNISONE TAB [Suspect]
     Indication: PROSTATE CANCER
     Route: 048
     Dates: start: 20091211, end: 20100304
  3. SUNITINIB MALATE [Suspect]
     Indication: PROSTATE CANCER
     Route: 048
     Dates: start: 20091211, end: 20100304

REACTIONS (1)
  - RENAL FAILURE ACUTE [None]
